FAERS Safety Report 24800197 (Version 1)
Quarter: 2025Q1

REPORT INFORMATION
  Report Type: Spontaneous
  Country: US (occurrence: US)
  Receive Date: 20250102
  Receipt Date: 20250102
  Transmission Date: 20250409
  Serious: No
  Sender: BRISTOL-MYERS SQUIBB COMPANY
  Company Number: US-BRISTOL-MYERS SQUIBB COMPANY-2025-000584

PATIENT
  Age: 75 Year
  Sex: Female
  Weight: 61.23 kg

DRUGS (2)
  1. KRAZATI [Suspect]
     Active Substance: ADAGRASIB
     Indication: Pancreatic carcinoma metastatic
     Dosage: DOSE : UNKNOWN;     FREQ : TWICE A DAY
     Route: 048
     Dates: start: 202410
  2. KRAZATI [Suspect]
     Active Substance: ADAGRASIB
     Dosage: DOSE : UNKNOWN;     FREQ : TWICE A DAY
     Route: 048

REACTIONS (4)
  - Vomiting [Unknown]
  - Product use complaint [Unknown]
  - Wrong technique in product usage process [Unknown]
  - Body height decreased [Unknown]

NARRATIVE: CASE EVENT DATE: 20241201
